FAERS Safety Report 4673672-4 (Version None)
Quarter: 2005Q2

REPORT INFORMATION
  Report Type: 
  Country: None (occurrence: None)
  Receive Date: 20050523
  Receipt Date: 20050322
  Transmission Date: 20051028
  Serious: No
  Sender: FDA-Public Use
  Company Number: MED000063

PATIENT

DRUGS (1)
  1. LACTATED RINGER'S [Suspect]

REACTIONS (3)
  - BURNING SENSATION [None]
  - PAIN [None]
  - TEARFULNESS [None]
